FAERS Safety Report 12250128 (Version 1)
Quarter: 2016Q2

REPORT INFORMATION
  Report Type: Spontaneous
  Country: US (occurrence: US)
  Receive Date: 20160408
  Receipt Date: 20160408
  Transmission Date: 20160815
  Serious: Yes (Other)
  Sender: FDA-Public Use
  Company Number: US-PFIZER INC-2016199365

PATIENT
  Age: 55 Year
  Sex: Male
  Weight: 104 kg

DRUGS (1)
  1. CHANTIX [Suspect]
     Active Substance: VARENICLINE TARTRATE
     Indication: SMOKING CESSATION THERAPY
     Dosage: 1 MG, 2X/DAY BY MOUTH
     Route: 048
     Dates: start: 201601

REACTIONS (4)
  - Road traffic accident [Unknown]
  - Dyspnoea [Unknown]
  - Pneumonia [Recovered/Resolved with Sequelae]
  - Lung disorder [Recovering/Resolving]

NARRATIVE: CASE EVENT DATE: 201602
